FAERS Safety Report 7339931-1 (Version None)
Quarter: 2011Q1

REPORT INFORMATION
  Report Type: 
  Country: None (occurrence: None)
  Receive Date: 20110309
  Receipt Date: 20110223
  Transmission Date: 20110831
  Serious: Yes (Other)
  Sender: FDA-Public Use
  Company Number: IN-RANBAXY-2011RR-42557

PATIENT
  Age: 49 Year
  Sex: Male

DRUGS (1)
  1. TOPIRAMATE [Suspect]
     Indication: ALCOHOLISM

REACTIONS (5)
  - LACRIMATION INCREASED [None]
  - IRIDOCYCLITIS [None]
  - ANGLE CLOSURE GLAUCOMA [None]
  - OCULAR HYPERAEMIA [None]
  - HEADACHE [None]
